FAERS Safety Report 6143701-X (Version None)
Quarter: 2009Q2

REPORT INFORMATION
  Report Type: 
  Country: None (occurrence: None)
  Receive Date: 20090403
  Receipt Date: 20090325
  Transmission Date: 20091009
  Serious: Yes (Other)
  Sender: FDA-Public Use
  Company Number: US-AMGEN-US338790

PATIENT
  Sex: Male
  Weight: 72.6 kg

DRUGS (5)
  1. NPLATE [Suspect]
     Indication: IDIOPATHIC THROMBOCYTOPENIC PURPURA
     Route: 042
     Dates: start: 20081021, end: 20090113
  2. VALIUM [Concomitant]
     Route: 065
  3. DECADRON [Concomitant]
     Route: 042
     Dates: start: 20080603
  4. PREDNISONE [Concomitant]
     Route: 048
     Dates: start: 20080603, end: 20081230
  5. PREDNISONE [Concomitant]
     Route: 048
     Dates: start: 20090113

REACTIONS (3)
  - FALL [None]
  - SPLENOMEGALY [None]
  - THERAPEUTIC RESPONSE DECREASED [None]
